FAERS Safety Report 13925284 (Version 1)
Quarter: 2017Q3

REPORT INFORMATION
  Report Type: Spontaneous
  Country: JP (occurrence: JP)
  Receive Date: 20170831
  Receipt Date: 20170831
  Transmission Date: 20171127
  Serious: Yes (Other)
  Sender: FDA-Public Use
  Company Number: JP-BAYER-2017-161123

PATIENT
  Age: 2 Year

DRUGS (1)
  1. NEXAVAR [Suspect]
     Active Substance: SORAFENIB
     Indication: OSTEOSARCOMA
     Route: 048

REACTIONS (3)
  - Osteosarcoma [Not Recovered/Not Resolved]
  - Product use in unapproved indication [None]
  - Off label use [None]
